FAERS Safety Report 13580943 (Version 1)
Quarter: 2017Q2

REPORT INFORMATION
  Report Type: Other
  Country: IT (occurrence: IT)
  Receive Date: 20170525
  Receipt Date: 20170525
  Transmission Date: 20170830
  Serious: Yes (Hospitalization, Other)
  Sender: FDA-Public Use
  Company Number: IT-CELLTRION INC.-2017IT006342

PATIENT

DRUGS (5)
  1. REMSIMA [Suspect]
     Active Substance: INFLIXIMAB
     Dosage: 400 MG IN 200 CC OF SALINE SOLUTION PER WEEK ON THE WEEKS 0, 2,6. AFTER EVERY 8 WEEKS., CYCLIC
     Route: 042
     Dates: start: 20161223, end: 20161223
  2. FENOFIBRATE. [Concomitant]
     Active Substance: FENOFIBRATE
     Dosage: 145 MG, UNK
     Route: 048
  3. METFORMIN [Concomitant]
     Active Substance: METFORMIN HYDROCHLORIDE
     Dosage: 2 UNITS; INTERVAL: 6 MONTHS
     Route: 048
  4. ENALAPRIL [Concomitant]
     Active Substance: ENALAPRIL
     Dosage: 20 MG, INTERVAL: 12 YEARS
     Route: 048
  5. REMSIMA [Suspect]
     Active Substance: INFLIXIMAB
     Indication: PSORIASIS
     Dosage: 400 MG IN 200 CC OF SALINE SOLUTION PER WEEK ON THE WEEKS 0, 2,6. AFTER EVERY 8 WEEKS., CYCLIC
     Route: 042
     Dates: start: 20160708, end: 20160708

REACTIONS (1)
  - Osteonecrosis of jaw [Not Recovered/Not Resolved]

NARRATIVE: CASE EVENT DATE: 20170203
